FAERS Safety Report 8530410-2 (Version None)
Quarter: 2012Q3

REPORT INFORMATION
  Report Type: 
  Country: None (occurrence: None)
  Receive Date: 20120723
  Receipt Date: 20120716
  Transmission Date: 20120928
  Serious: Yes (Other)
  Sender: FDA-Public Use
  Company Number: US-PFIZER INC-2012150043

PATIENT
  Sex: Female

DRUGS (16)
  1. HUMIRA [Concomitant]
     Dosage: 40MG/0.8ML INJECTION; INJECT 0.8 MLS INTO THE SKIN EVERY 14 DAYS
     Route: 058
  2. CLARINEX [Concomitant]
     Dosage: 5 MG, TAKE 1 TABLET BY MOUTH DAILY)
     Route: 048
  3. ADVAIR DISKUS 100/50 [Concomitant]
     Dosage: 100-50 MCG/DOSE DISKUS INHALER, INHALE 1 PUFF INTO THE LUNGS EVERY 12  HOURS
  4. BACTRIM DS [Concomitant]
     Dosage: 800-160 MG PER TABLET; TAKE 1 TABLET BY MOUTH 2 TIMES A DAILY
     Route: 048
  5. JANUMET [Concomitant]
     Dosage: 50-1,000 MG PER TABLET; TAKE 1 TABLET BY MOUTH 2 TIMES DAILY WITH MEALS.
     Route: 048
  6. ALBUTEROL (PROVENTIL HFA) [Concomitant]
     Indication: WHEEZING
     Dosage: 90 UG, 4X/DAY (90MCG/ACTUATION INHALER, INHALE 2 PUFFS INTO THE LUNGS 4 TIMES DAILY AS NEEDED)
  7. DELTASONE [Concomitant]
     Dosage: 30 MG, 1X/DAY
     Route: 048
  8. SPIRIVA [Concomitant]
     Dosage: 18 MCG INHALATION CAPSULE; PLACE 1 CAPSULE INTO DEVICE AND INHALE DAILY
  9. ALBUTEROL (VENTOLIN HFA (90 MCG)) [Concomitant]
     Indication: WHEEZING
     Dosage: 90MCG/ACTUATION INHALER, INHALE 2 PUFFS INTO THE LUNGS 4 TIMES DAILY AS NEEDED
  10. ASCORBIC ACID [Concomitant]
     Dosage: 500 MG, 2X/DAY (TAKE 1 TABLET BY MOUTH 2 TIMES DAILY)
     Route: 048
  11. VITAMIN D [Concomitant]
     Dosage: 5,000 UNIT TAB, TAKE 1 TABLET BY MOUTH DAILY)
     Route: 048
  12. DIOVAN HCT [Concomitant]
     Dosage: 160-25 MG PER TABLET; TAKE 1 TABLET BY MOUTH DAILY
     Route: 048
  13. LORTAB [Concomitant]
     Dosage: 10-500 MG PER TABLET, TAKE 1 TABLET BY MOUTH EVERY 6 HOURS AS NEEDED
     Route: 048
  14. LYRICA [Suspect]
     Dosage: 75 MG, 3X/DAY (1 PO TID)
     Route: 048
  15. IMURAN [Concomitant]
     Dosage: 100 MG, 1X/DAY
     Route: 048
  16. LIPITOR [Concomitant]
     Dosage: 10 MG, 1X/DAY
     Route: 048

REACTIONS (12)
  - FIBROMYALGIA [None]
  - ESSENTIAL HYPERTENSION [None]
  - PAIN IN EXTREMITY [None]
  - VITAMIN D DEFICIENCY [None]
  - BLOOD CHOLESTEROL INCREASED [None]
  - CARPAL TUNNEL SYNDROME [None]
  - TYPE 2 DIABETES MELLITUS [None]
  - CHRONIC OBSTRUCTIVE PULMONARY DISEASE [None]
  - ARTHRALGIA [None]
  - RHINITIS ALLERGIC [None]
  - CROHN'S DISEASE [None]
  - ANAEMIA [None]
